FAERS Safety Report 4860951-0 (Version None)
Quarter: 2005Q4

REPORT INFORMATION
  Report Type: 
  Country: None (occurrence: None)
  Receive Date: 20051220
  Receipt Date: 20051209
  Transmission Date: 20060501
  Serious: Yes (Death)
  Sender: FDA-Public Use
  Company Number: CA-BRISTOL-MYERS SQUIBB COMPANY-13218243

PATIENT
  Age: 82 Year
  Sex: Male

DRUGS (14)
  1. TEQUIN [Suspect]
     Route: 048
  2. CIPROFLOXACIN [Suspect]
     Route: 042
  3. COLACE [Concomitant]
  4. DALTEPARIN [Concomitant]
  5. GLYBURIDE [Concomitant]
  6. HEPARIN [Concomitant]
  7. IPRATROPIUM BROMIDE [Concomitant]
  8. LASIX [Concomitant]
  9. METFORMIN HCL [Concomitant]
  10. METOPROLOL [Concomitant]
  11. METRONIDAZOLE [Concomitant]
  12. MORPHINE [Concomitant]
  13. RISPERDAL [Concomitant]
  14. VENTOLIN [Concomitant]

REACTIONS (1)
  - HYPERGLYCAEMIA [None]
